FAERS Safety Report 8361641-2 (Version None)
Quarter: 2012Q2

REPORT INFORMATION
  Report Type: 
  Country: None (occurrence: None)
  Receive Date: 20120515
  Receipt Date: 20120430
  Transmission Date: 20120825
  Serious: Yes (Death, Hospitalization, Other)
  Sender: FDA-Public Use
  Company Number: FR-WATSON-2012-07958

PATIENT
  Age: 62 Year
  Sex: Female

DRUGS (3)
  1. PROCORALAN [Suspect]
     Indication: HYPERTENSION
     Dosage: 5 MG, BID
     Route: 065
  2. DILTIAZEM HYDROCHLORIDE [Suspect]
     Indication: HYPERTENSION
     Dosage: 200 MG, UNKNOWN
     Route: 065
  3. SPIRONOLOACTONEFUROSEMIDE [Suspect]
     Indication: HYPERTENSION
     Dosage: 50/20 MG DAILY
     Route: 065

REACTIONS (6)
  - VENTRICULAR TACHYCARDIA [None]
  - BRAIN DEATH [None]
  - ELECTROCARDIOGRAM QT PROLONGED [None]
  - ATRIAL FIBRILLATION [None]
  - TORSADE DE POINTES [None]
  - CARDIAC ARREST [None]
